FAERS Safety Report 18415305 (Version 3)
Quarter: 2020Q4

REPORT INFORMATION
  Report Type: Report from Study
  Country: US (occurrence: US)
  Receive Date: 20201022
  Receipt Date: 20201119
  Transmission Date: 20210114
  Serious: Yes (Death, Hospitalization)
  Sender: FDA-Public Use
  Company Number: US-OTSUKA-2020_025520

PATIENT
  Age: 72 Year
  Sex: Male

DRUGS (1)
  1. ASTX727 [Suspect]
     Active Substance: CEDAZURIDINE\DECITABINE
     Indication: MYELODYSPLASTIC SYNDROME
     Dosage: 135 MG, QD DAYS 1 TO 5 OF 28 DAYS TREATMENT CYCLE
     Route: 048
     Dates: start: 20200924

REACTIONS (3)
  - Death [Fatal]
  - Gastrointestinal haemorrhage [Not Recovered/Not Resolved]
  - Transfusion reaction [Not Recovered/Not Resolved]

NARRATIVE: CASE EVENT DATE: 20201021
